FAERS Safety Report 14593076 (Version 1)
Quarter: 2018Q1

REPORT INFORMATION
  Report Type: Spontaneous
  Country: US (occurrence: US)
  Receive Date: 20180302
  Receipt Date: 20180302
  Transmission Date: 20180509
  Serious: Yes (Life-Threatening, Disabling, Other)
  Sender: FDA-Public Use
  Company Number: None

PATIENT
  Age: 86 Year
  Sex: Female
  Weight: 43.09 kg

DRUGS (11)
  1. RIVASTAMINE [Concomitant]
  2. CALCIUM+D [Concomitant]
     Active Substance: CALCIUM\VITAMIN D
  3. APRIZO [Concomitant]
  4. DIVALPROEX [Concomitant]
     Active Substance: DIVALPROEX SODIUM
  5. LACTOBACILLUS ACIDOPHILUS\LACTOBACILLUS BULGARICUS [Concomitant]
     Active Substance: LACTOBACILLUS ACIDOPHILUS\LACTOBACILLUS DELBRUECKII SUBSP. BULGARICUS
  6. LISINOPRIL. [Concomitant]
     Active Substance: LISINOPRIL
  7. TRAZODONE [Concomitant]
     Active Substance: TRAZODONE HYDROCHLORIDE
  8. FENTANYL 12MCG [Suspect]
     Active Substance: FENTANYL
     Indication: PAIN IN EXTREMITY
     Dosage: 1 PATCH ON FOR 3 DAYS PATCH ON SHOULDER OR BACK
     Route: 061
     Dates: end: 20180116
  9. 81 ASPRIN [Concomitant]
  10. FENTANYL 12MCG [Suspect]
     Active Substance: FENTANYL
     Indication: MUSCULOSKELETAL PAIN
     Dosage: 1 PATCH ON FOR 3 DAYS PATCH ON SHOULDER OR BACK
     Route: 061
     Dates: end: 20180116
  11. FENTANYL 12MCG [Suspect]
     Active Substance: FENTANYL
     Indication: DRUG THERAPY
     Dosage: 1 PATCH ON FOR 3 DAYS PATCH ON SHOULDER OR BACK
     Route: 061
     Dates: end: 20180116

REACTIONS (10)
  - Somnolence [None]
  - Fall [None]
  - Drug effect increased [None]
  - Loss of personal independence in daily activities [None]
  - Hypersomnia [None]
  - Trichoglossia [None]
  - Musculoskeletal disorder [None]
  - Protein deficiency [None]
  - Wrong technique in device usage process [None]
  - Muscular weakness [None]

NARRATIVE: CASE EVENT DATE: 20180101
